FAERS Safety Report 5674596-6 (Version None)
Quarter: 2008Q2

REPORT INFORMATION
  Report Type: 
  Country: None (occurrence: None)
  Receive Date: 20080304
  Receipt Date: 20071019
  Transmission Date: 20081010
  Serious: Yes (Hospitalization)
  Sender: FDA-Public Use
  Company Number: WAES 0710USA05343

PATIENT
  Age: 86 Year
  Sex: Female

DRUGS (9)
  1. PRINIVIL [Suspect]
     Dosage: PO
     Route: 048
     Dates: end: 20070901
  2. COUMADIN [Concomitant]
  3. ZOCOR [Concomitant]
  4. ALLOPURINOL [Concomitant]
  5. ASPIRIN [Concomitant]
  6. DIGOXIN [Concomitant]
  7. FUROSEMIDE [Concomitant]
  8. INDOMETHACIN [Concomitant]
  9. SPIRONOLACTONE [Concomitant]

REACTIONS (6)
  - CARDIAC FAILURE CONGESTIVE [None]
  - FALL [None]
  - HYPOAESTHESIA [None]
  - PAIN IN EXTREMITY [None]
  - PARAESTHESIA [None]
  - SWELLING [None]
